FAERS Safety Report 9802973 (Version 1)
Quarter: 2014Q1

REPORT INFORMATION
  Report Type: Spontaneous
  Country: US (occurrence: None)
  Receive Date: 20140106
  Receipt Date: 20140106
  Transmission Date: 20141002
  Serious: Yes (Hospitalization)
  Sender: FDA-Public Use
  Company Number: None

PATIENT
  Age: 60 Year
  Sex: Male
  Weight: 90.9 kg

DRUGS (11)
  1. OFIRMEV [Suspect]
     Indication: SURGERY
     Dates: start: 20131217
  2. DEXAMETHASONE [Suspect]
  3. KETOROLAC [Suspect]
  4. ZINC [Concomitant]
  5. VITAMIN # [Concomitant]
  6. BROMELAINS [Concomitant]
  7. VITAMIN C [Concomitant]
  8. METOPROLOL TARTRATE [Concomitant]
  9. ATORVASTATIN [Concomitant]
  10. ASPIRIN [Concomitant]
  11. AMLODIPINE [Concomitant]

REACTIONS (3)
  - Bradycardia [None]
  - Bronchospasm [None]
  - Cardiac arrest [None]
